FAERS Safety Report 4407177-2 (Version None)
Quarter: 2004Q3

REPORT INFORMATION
  Report Type: 
  Country: None (occurrence: None)
  Receive Date: 20040721
  Receipt Date: 20040719
  Transmission Date: 20050211
  Serious: Yes (Hospitalization)
  Sender: FDA-Public Use
  Company Number: 002# 4 #2004-00142 (0)

PATIENT
  Age: 73 Year
  Sex: Female

DRUGS (3)
  1. METHOCARBAMOL [Suspect]
     Indication: MUSCLE SPASMS
     Dosage: ORAL
     Route: 048
     Dates: start: 20040602, end: 20040601
  2. CLINDAMYCIN [Suspect]
     Indication: ESCHERICHIA URINARY TRACT INFECTION
     Dosage: ORAL
     Route: 048
     Dates: start: 20040602, end: 20040610
  3. NYSTATIN [Concomitant]

REACTIONS (12)
  - ASTHENIA [None]
  - BACTERIAL INFECTION [None]
  - CHILLS [None]
  - COGNITIVE DISORDER [None]
  - DEPRESSED LEVEL OF CONSCIOUSNESS [None]
  - DRUG HYPERSENSITIVITY [None]
  - FATIGUE [None]
  - HILAR LYMPHADENOPATHY [None]
  - LYMPHADENOPATHY MEDIASTINAL [None]
  - PYREXIA [None]
  - SEPSIS [None]
  - URINARY TRACT INFECTION [None]
